FAERS Safety Report 7810833-7 (Version None)
Quarter: 2011Q4

REPORT INFORMATION
  Report Type: 
  Country: None (occurrence: None)
  Receive Date: 20111013
  Receipt Date: 20111006
  Transmission Date: 20120403
  Serious: Yes (Other)
  Sender: FDA-Public Use
  Company Number: HK-BAYER-2011-090767

PATIENT
  Age: 24 Year
  Sex: Female

DRUGS (1)
  1. BETASERON [Suspect]
     Indication: MULTIPLE SCLEROSIS
     Dosage: UNK
     Route: 058
     Dates: start: 20090715

REACTIONS (11)
  - PRURITUS [None]
  - INJECTION SITE SWELLING [None]
  - NEURITIS CRANIAL [None]
  - BLEPHAROSPASM [None]
  - RHINORRHOEA [None]
  - INJECTION SITE PAIN [None]
  - INJECTION SITE HAEMATOMA [None]
  - INJECTION SITE PRURITUS [None]
  - DISEASE PROGRESSION [None]
  - ADVERSE DRUG REACTION [None]
  - INJECTION SITE REACTION [None]
